FAERS Safety Report 7403668-0 (Version None)
Quarter: 2011Q2

REPORT INFORMATION
  Report Type: 
  Country: None (occurrence: None)
  Receive Date: 20110408
  Receipt Date: 20110324
  Transmission Date: 20111010
  Serious: Yes (Hospitalization)
  Sender: FDA-Public Use
  Company Number: PHHY2011JP09457

PATIENT
  Age: 64 Year
  Sex: Male

DRUGS (2)
  1. RASILEZ [Suspect]
     Indication: HYPERTENSION
     Dosage: 150 MG, UNK
     Route: 048
     Dates: start: 20101119
  2. TAMSULOSIN HCL [Suspect]
     Dosage: 0.2 MG, UNK
     Route: 048
     Dates: start: 20101119

REACTIONS (1)
  - POLLAKIURIA [None]
